FAERS Safety Report 8040995-0 (Version None)
Quarter: 2012Q1

REPORT INFORMATION
  Report Type: 
  Country: None (occurrence: None)
  Receive Date: 20120112
  Receipt Date: 20120106
  Transmission Date: 20120608
  Serious: No
  Sender: FDA-Public Use
  Company Number: US-BIOGENIDEC-2012BI000848

PATIENT
  Age: 45 Year
  Sex: Female

DRUGS (3)
  1. TYSABRI [Suspect]
     Indication: MULTIPLE SCLEROSIS
     Route: 042
     Dates: start: 20110912
  2. TYSABRI [Suspect]
     Route: 042
     Dates: start: 20090623, end: 20100719
  3. TYSABRI [Suspect]
     Route: 042
     Dates: start: 20070917, end: 20080902

REACTIONS (1)
  - POOR VENOUS ACCESS [None]
